FAERS Safety Report 6556380-4 (Version None)
Quarter: 2010Q1

REPORT INFORMATION
  Report Type: 
  Country: None (occurrence: None)
  Receive Date: 20100128
  Receipt Date: 20100127
  Transmission Date: 20100710
  Serious: Yes (Life-Threatening, Hospitalization)
  Sender: FDA-Public Use
  Company Number: GXKR2009DE03787

PATIENT
  Age: 85 Year
  Sex: Female
  Weight: 70 kg

DRUGS (11)
  1. CARVEDILOL [Interacting]
     Indication: CARDIAC FAILURE
     Dosage: 6.25 MG, BID
     Route: 048
     Dates: start: 20081107, end: 20081214
  2. ENALAPRIL (NGX) [Suspect]
     Indication: CARDIAC FAILURE
     Dosage: 2.5 MG, BID
     Route: 048
     Dates: start: 20081107, end: 20081214
  3. LANTUS [Interacting]
     Indication: TYPE 2 DIABETES MELLITUS
     Dosage: 16 IU, QD
     Route: 058
     Dates: start: 20000101
  4. NOVOMIX [Interacting]
     Indication: TYPE 2 DIABETES MELLITUS
     Dosage: 26-12-16 IU
     Route: 058
     Dates: start: 20000101, end: 20081214
  5. NOVONORM [Interacting]
     Indication: TYPE 2 DIABETES MELLITUS
     Dosage: 2 MG, TID
     Route: 048
     Dates: start: 20000101, end: 20081214
  6. ALLOPURINOL [Concomitant]
     Route: 048
  7. DIGITOXIN INJ [Concomitant]
     Route: 048
  8. LEVOTHYROXINE SODIUM [Concomitant]
     Route: 048
  9. OMEPRAZOLE [Concomitant]
     Route: 048
  10. SPIRONOLACTONE [Concomitant]
     Route: 048
  11. TORASEMIDE [Concomitant]
     Route: 048

REACTIONS (1)
  - HYPOGLYCAEMIA [None]
